FAERS Safety Report 10470635 (Version 14)
Quarter: 2015Q4

REPORT INFORMATION
  Report Type: Report from Study
  Country: US (occurrence: US)
  Receive Date: 20140923
  Receipt Date: 20151016
  Transmission Date: 20160304
  Serious: Yes (Hospitalization, Other)
  Sender: FDA-Public Use
  Company Number: US-ALEXION-A201403624

PATIENT
  Age: 62 Year
  Sex: Female

DRUGS (3)
  1. SOLIRIS [Suspect]
     Active Substance: ECULIZUMAB
     Indication: HAEMOLYTIC URAEMIC SYNDROME
     Dosage: UNK
     Route: 042
  2. SOLIRIS [Suspect]
     Active Substance: ECULIZUMAB
     Dosage: UNK, EVERY 10 DAYS
     Route: 042
  3. SOLIRIS [Suspect]
     Active Substance: ECULIZUMAB
     Dosage: 1200 MG, EVERY 12 DAYS
     Route: 042

REACTIONS (30)
  - Abdominal pain [Recovered/Resolved]
  - Cough [Recovered/Resolved]
  - Weight increased [Not Recovered/Not Resolved]
  - Headache [Unknown]
  - Oropharyngeal pain [Recovered/Resolved]
  - Nasopharyngitis [Recovering/Resolving]
  - Oedema peripheral [Not Recovered/Not Resolved]
  - Delusion [Unknown]
  - Abdominal distension [Unknown]
  - Incorrect dose administered [Not Recovered/Not Resolved]
  - Transient ischaemic attack [Not Recovered/Not Resolved]
  - Nausea [Recovered/Resolved]
  - Dysphonia [Unknown]
  - Back pain [Unknown]
  - Rhinorrhoea [Recovering/Resolving]
  - Nausea [Unknown]
  - Oropharyngeal pain [Not Recovered/Not Resolved]
  - Platelet count decreased [Not Recovered/Not Resolved]
  - Vomiting [Unknown]
  - Tremor [Unknown]
  - Haemolysis [Unknown]
  - Neurilemmoma benign [Not Recovered/Not Resolved]
  - Pneumonia [Recovered/Resolved]
  - Cataract [Unknown]
  - Unevaluable event [Unknown]
  - Myocardial infarction [Recovered/Resolved]
  - Bronchitis [Recovered/Resolved]
  - Speech disorder [Unknown]
  - Fatigue [Unknown]
  - Arthralgia [Unknown]

NARRATIVE: CASE EVENT DATE: 20140714
